FAERS Safety Report 5523206-7 (Version None)
Quarter: 2007Q4

REPORT INFORMATION
  Report Type: 
  Country: None (occurrence: None)
  Receive Date: 20071121
  Receipt Date: 20071114
  Transmission Date: 20080405
  Serious: Yes (Hospitalization)
  Sender: FDA-Public Use
  Company Number: PHEH2007US12730

PATIENT
  Sex: Female
  Weight: 94.331 kg

DRUGS (1)
  1. VIVELLE-DOT [Suspect]
     Dosage: 0.05 MG, UNK
     Route: 062
     Dates: start: 20070808, end: 20070910

REACTIONS (4)
  - ERYTHEMA NODOSUM [None]
  - PARAESTHESIA [None]
  - RASH MACULAR [None]
  - SKIN DISCOLOURATION [None]
